FAERS Safety Report 9892563 (Version 1)
Quarter: 2020Q3

REPORT INFORMATION
  Report Type: Report from Study
  Country: GB (occurrence: GB)
  Receive Date: 20140212
  Receipt Date: 20140212
  Transmission Date: 20201105
  Serious: Yes (Hospitalization, Other)
  Sender: FDA-Public Use
  Company Number: PHHY2014GB014449

PATIENT
  Age: 69 Year
  Sex: Female
  Weight: 48 kg

DRUGS (33)
  1. OXALIPLATIN. [Suspect]
     Active Substance: OXALIPLATIN
  2. SALMETEROL [Concomitant]
     Active Substance: SALMETEROL
     Indication: ASTHMA
     Route: 055
  3. THYROXINE [Concomitant]
     Active Substance: LEVOTHYROXINE
     Indication: HYPOTHYROIDISM
     Route: 048
  4. CITALOPRAM [Concomitant]
     Active Substance: CITALOPRAM HYDROBROMIDE
     Indication: DEPRESSION
     Dosage: 20 MG, UNK
     Route: 048
  5. CO?AMILOFRUSE [Concomitant]
     Active Substance: AMILORIDE\FUROSEMIDE
     Indication: AORTIC STENOSIS
     Route: 048
  6. ONDANSETRON [Concomitant]
     Active Substance: ONDANSETRON
     Dosage: 8 MG, UNK
     Route: 048
     Dates: end: 20130407
  7. LOPERAMIDE [Concomitant]
     Active Substance: LOPERAMIDE
     Indication: DIARRHOEA
     Dosage: 2 MG, UNK
     Route: 048
     Dates: start: 20130212
  8. OXALIPLATIN. [Suspect]
     Active Substance: OXALIPLATIN
     Indication: GASTROOESOPHAGEAL CANCER
     Route: 042
     Dates: start: 20130215
  9. ONARTUZUMAB. [Suspect]
     Active Substance: ONARTUZUMAB
     Dosage: 501 MG, BIW
     Route: 042
     Dates: start: 20130404
  10. DEXAMETHASONE. [Concomitant]
     Active Substance: DEXAMETHASONE
     Indication: NAUSEA
     Dosage: 8 MG, UNK
     Route: 048
     Dates: start: 20130215, end: 20130407
  11. CYCLIZINE [Concomitant]
     Active Substance: CYCLIZINE
     Indication: NAUSEA
     Dosage: 50 MG, UNK
     Route: 048
     Dates: start: 20130312
  12. BECLOMETASONE DIPROPIONATE [Concomitant]
     Active Substance: BECLOMETHASONE DIPROPIONATE
     Indication: ASTHMA
     Dosage: 100 DF, UNK
     Route: 055
  13. ONDANSETRON [Concomitant]
     Active Substance: ONDANSETRON
     Indication: NAUSEA
     Dosage: 8 MG, UNK
     Route: 048
     Dates: start: 20130215, end: 20130404
  14. 5?FLUOROURACIL [Suspect]
     Active Substance: FLUOROURACIL
     Indication: GASTROOESOPHAGEAL CANCER
     Route: 042
     Dates: start: 20130215, end: 20130215
  15. 5?FLUOROURACIL [Suspect]
     Active Substance: FLUOROURACIL
     Dosage: 480 MG, BIW
     Route: 042
     Dates: start: 20130404
  16. FOLINIC ACID [Suspect]
     Active Substance: LEUCOVORIN
     Indication: GASTROOESOPHAGEAL CANCER
     Route: 042
     Dates: start: 20130215
  17. ONARTUZUMAB. [Suspect]
     Active Substance: ONARTUZUMAB
     Indication: GASTROOESOPHAGEAL CANCER
     Route: 042
     Dates: start: 20130215
  18. SIMVASTATIN. [Concomitant]
     Active Substance: SIMVASTATIN
     Indication: HYPERCHOLESTEROLAEMIA
     Route: 048
  19. FLUCONAZOLE. [Concomitant]
     Active Substance: FLUCONAZOLE
     Indication: MUCOSAL INFLAMMATION
     Dosage: 50 MG, UNK
     Route: 048
     Dates: start: 20130312
  20. ESOMEPRAZOLE. [Concomitant]
     Active Substance: ESOMEPRAZOLE MAGNESIUM
     Dosage: 40 MG, UNK
     Route: 048
  21. LACTULOSE. [Concomitant]
     Active Substance: LACTULOSE
     Indication: CONSTIPATION
     Dosage: 20 ML, UNK
     Route: 048
     Dates: start: 20130226
  22. CO?DANTHRAMER [Concomitant]
     Indication: CONSTIPATION
     Dosage: 2 DF, UNK
     Route: 048
     Dates: start: 20130226
  23. SANDO K                            /00209301/ [Concomitant]
     Indication: BLOOD POTASSIUM DECREASED
     Dosage: 2 DF, UNK
     Route: 048
     Dates: start: 20130319, end: 20130324
  24. 5?FLUOROURACIL [Suspect]
     Active Substance: FLUOROURACIL
     Dosage: 2850 MG, UNK
     Route: 042
     Dates: start: 20130404
  25. FOLINIC ACID [Suspect]
     Active Substance: LEUCOVORIN
     Dosage: 600 MG, BIW
     Route: 042
     Dates: start: 20130404
  26. LEVOMEPROMAZINE [Concomitant]
     Active Substance: LEVOMEPROMAZINE
     Indication: NAUSEA
     Dosage: 3 MG, UNK
     Route: 048
     Dates: start: 20130228
  27. SANDO K                            /00209301/ [Concomitant]
     Dosage: 2 DF, UNK
     Route: 048
     Dates: start: 20130411, end: 20130416
  28. GAVISCON                           /01521901/ [Concomitant]
     Indication: DYSPEPSIA
     Dosage: 10 ML, UNK
     Route: 048
     Dates: start: 20121102
  29. FUROSEMIDE. [Concomitant]
     Active Substance: FUROSEMIDE
     Indication: AORTIC STENOSIS
     Dosage: 40 MG, UNK
     Route: 048
  30. DOMPERIDONE [Concomitant]
     Active Substance: DOMPERIDONE
     Indication: NAUSEA
     Dosage: 10 MG, UNK
     Route: 048
     Dates: start: 20051007
  31. PARACETAMOL [Concomitant]
     Active Substance: ACETAMINOPHEN
     Indication: DISCOMFORT
     Dosage: 1 G, UNK
     Route: 048
  32. AMIODARONE [Concomitant]
     Active Substance: AMIODARONE
     Indication: AORTIC STENOSIS
     Dosage: 200 MG, UNK
     Route: 048
     Dates: start: 20130215
  33. AMILORIDE [Concomitant]
     Active Substance: AMILORIDE
     Indication: AORTIC STENOSIS
     Dosage: 5 MG, UNK
     Route: 048

REACTIONS (4)
  - Hypotension [Unknown]
  - Axillary vein thrombosis [Recovered/Resolved]
  - Circulatory collapse [Unknown]
  - Dehydration [Recovered/Resolved]

NARRATIVE: CASE EVENT DATE: 20130411
